FAERS Safety Report 25719490 (Version 2)
Quarter: 2025Q3

REPORT INFORMATION
  Report Type: Spontaneous
  Country: US (occurrence: US)
  Receive Date: 20250824
  Receipt Date: 20250906
  Transmission Date: 20251021
  Serious: No
  Sender: BAUSCH AND LOMB
  Company Number: US-BAUSCHBL-2025BNL014482

PATIENT
  Sex: Female

DRUGS (2)
  1. LOTEPREDNOL ETABONATE [Suspect]
     Active Substance: LOTEPREDNOL ETABONATE
     Indication: Routine health maintenance
     Route: 065
     Dates: start: 20250814
  2. GABAPENTIN [Concomitant]
     Active Substance: GABAPENTIN
     Indication: Product used for unknown indication
     Route: 065

REACTIONS (5)
  - Dizziness [Recovering/Resolving]
  - Balance disorder [Recovering/Resolving]
  - Visual impairment [Recovering/Resolving]
  - Gait disturbance [Recovering/Resolving]
  - Vision blurred [Recovering/Resolving]

NARRATIVE: CASE EVENT DATE: 20250801
